FAERS Safety Report 17270586 (Version 1)
Quarter: 2020Q1

REPORT INFORMATION
  Report Type: Report from Study
  Country: US (occurrence: US)
  Receive Date: 20200114
  Receipt Date: 20200114
  Transmission Date: 20200409
  Serious: Yes (Hospitalization)
  Sender: FDA-Public Use
  Company Number: NVSC2020US003062

PATIENT
  Sex: Female
  Weight: 69.7 kg

DRUGS (9)
  1. ENTRESTO [Suspect]
     Active Substance: SACUBITRIL\VALSARTAN
     Indication: CARDIAC FAILURE CONGESTIVE
     Dosage: 50 MG, BID
     Route: 048
     Dates: start: 20190724
  2. METOPROLOL. [Concomitant]
     Active Substance: METOPROLOL
     Indication: PRODUCT USED FOR UNKNOWN INDICATION
     Dosage: 100 MG
     Route: 048
  3. PNEUMOCOCCAL VACCINE POLYVALENT NOS [Concomitant]
     Active Substance: PNEUMOCOCCAL VACCINE POLYVALENT
     Indication: PRODUCT USED FOR UNKNOWN INDICATION
     Dosage: 0.5 ML
     Route: 030
  4. METOPROLOL. [Concomitant]
     Active Substance: METOPROLOL
     Dosage: 3 DF, BID (TAKE 3 TABLETS OF 75 MG BID)
     Route: 048
     Dates: start: 20191218
  5. APIXABAN [Concomitant]
     Active Substance: APIXABAN
     Indication: PRODUCT USED FOR UNKNOWN INDICATION
     Dosage: 5 MG, BID
     Route: 048
  6. ACETAMINOPHEN. [Concomitant]
     Active Substance: ACETAMINOPHEN
     Indication: PRODUCT USED FOR UNKNOWN INDICATION
     Dosage: 500 MG, PRN
     Route: 065
     Dates: start: 20191213
  7. CODEINE [Concomitant]
     Active Substance: CODEINE
     Indication: PRODUCT USED FOR UNKNOWN INDICATION
     Dosage: UNK, PRN
     Route: 065
     Dates: start: 20191218
  8. COREG [Concomitant]
     Active Substance: CARVEDILOL
     Indication: PRODUCT USED FOR UNKNOWN INDICATION
     Dosage: 3 MG, BID
     Route: 065
  9. ALBUTEROL. [Concomitant]
     Active Substance: ALBUTEROL
     Indication: PRODUCT USED FOR UNKNOWN INDICATION
     Dosage: 2.25 MG
     Route: 065
     Dates: start: 20191218, end: 20191218

REACTIONS (11)
  - Carbon dioxide abnormal [Unknown]
  - Device malfunction [Unknown]
  - Red blood cell count decreased [Unknown]
  - Haemoglobin abnormal [Unknown]
  - Palpitations [Unknown]
  - Influenza [Unknown]
  - Dyspnoea [Unknown]
  - White blood cell count abnormal [Unknown]
  - Lymphocyte count decreased [Unknown]
  - Blood calcium decreased [Unknown]
  - Blood chloride abnormal [Unknown]
